FAERS Safety Report 18320597 (Version 2)
Quarter: 2020Q4

REPORT INFORMATION
  Report Type: Spontaneous
  Country: IT (occurrence: IT)
  Receive Date: 20200929
  Receipt Date: 20201007
  Transmission Date: 20210113
  Serious: Yes (Hospitalization, Other)
  Sender: FDA-Public Use
  Company Number: IT-AUROBINDO-AUR-APL-2020-049844

PATIENT
  Age: 30 Year
  Sex: Female

DRUGS (13)
  1. AMOXICILLIN. [Suspect]
     Active Substance: AMOXICILLIN
     Indication: EVIDENCE BASED TREATMENT
     Dosage: UNK
     Route: 065
  2. AMOXICILLIN. [Suspect]
     Active Substance: AMOXICILLIN
     Indication: ANTIBIOTIC THERAPY
  3. IBUPROFEN. [Suspect]
     Active Substance: IBUPROFEN
     Indication: BREAST PAIN
  4. LEVOBUPIVACAINE [Suspect]
     Active Substance: LEVOBUPIVACAINE
     Indication: LOCAL ANAESTHESIA
     Dosage: 7 MILLILITER (PER HOUR), SIXTY MINUTES AFTER THE FIRST BOLUS
     Route: 041
  5. MIDAZOLAM. [Concomitant]
     Active Substance: MIDAZOLAM
     Indication: ANALGESIC THERAPY
     Dosage: 2 MILLIGRAM
     Route: 065
  6. MIDAZOLAM. [Concomitant]
     Active Substance: MIDAZOLAM
     Indication: SEDATION
  7. LEVOBUPIVACAINE [Suspect]
     Active Substance: LEVOBUPIVACAINE
     Indication: LOCAL ANAESTHESIA
     Dosage: 20 MILLILITER
     Route: 040
  8. FLUCONAZOLE. [Suspect]
     Active Substance: FLUCONAZOLE
     Indication: CANDIDA INFECTION
     Dosage: UNK
     Route: 065
  9. FLUCONAZOLE. [Suspect]
     Active Substance: FLUCONAZOLE
     Indication: MASTITIS FUNGAL
  10. IBUPROFEN. [Suspect]
     Active Substance: IBUPROFEN
     Indication: MASTITIS FUNGAL
  11. KETAMINE [Concomitant]
     Active Substance: KETAMINE
     Indication: ANALGESIC THERAPY
     Dosage: 40 MILLIGRAM (RATE: 0.5 MG/KG)
     Route: 042
  12. KETAMINE [Concomitant]
     Active Substance: KETAMINE
     Indication: SEDATION
  13. IBUPROFEN. [Suspect]
     Active Substance: IBUPROFEN
     Indication: MASTITIS
     Dosage: 600 MILLIGRAM, 3 TIMES A DAY
     Route: 065

REACTIONS (2)
  - Drug ineffective [Unknown]
  - Maternal exposure during breast feeding [Unknown]
